FAERS Safety Report 5049568-5 (Version None)
Quarter: 2006Q3

REPORT INFORMATION
  Report Type: 
  Country: None (occurrence: None)
  Receive Date: 20060712
  Receipt Date: 20060629
  Transmission Date: 20061208
  Serious: Yes (Hospitalization, Other)
  Sender: FDA-Public Use
  Company Number: US-BRISTOL-MYERS SQUIBB COMPANY-13435029

PATIENT

DRUGS (1)
  1. DEFINITY [Suspect]
     Dates: start: 20060601

REACTIONS (2)
  - OBSTRUCTIVE AIRWAYS DISORDER [None]
  - URTICARIA [None]
